FAERS Safety Report 8040162-0 (Version None)
Quarter: 2012Q1

REPORT INFORMATION
  Report Type: 
  Country: None (occurrence: None)
  Receive Date: 20120111
  Receipt Date: 20111222
  Transmission Date: 20120608
  Serious: No
  Sender: FDA-Public Use
  Company Number: US-AMGEN-USASP2011068572

PATIENT
  Age: 12 Year
  Sex: Female

DRUGS (2)
  1. ENBREL [Suspect]
     Indication: JUVENILE ARTHRITIS
     Dosage: 25 MG, QWK
     Dates: start: 20111202
  2. METHOTREXATE [Concomitant]
     Dosage: UNK
     Dates: start: 20090101

REACTIONS (5)
  - HEAD DISCOMFORT [None]
  - PAIN [None]
  - FATIGUE [None]
  - BACK PAIN [None]
  - PYREXIA [None]
